FAERS Safety Report 6803817-9 (Version None)
Quarter: 2010Q2

REPORT INFORMATION
  Report Type: 
  Country: None (occurrence: None)
  Receive Date: 20100628
  Receipt Date: 20100615
  Transmission Date: 20101027
  Serious: Yes (Hospitalization)
  Sender: FDA-Public Use
  Company Number: FR-ELI_LILLY_AND_COMPANY-FR201006003773

PATIENT
  Sex: Male

DRUGS (12)
  1. GEMZAR [Suspect]
     Indication: LUNG ADENOCARCINOMA
     Dosage: UNK, UNKNOWN
     Route: 042
     Dates: start: 20090528, end: 20090616
  2. CISPLATIN [Concomitant]
     Indication: LUNG ADENOCARCINOMA
     Route: 042
     Dates: start: 20090528
  3. EMEND [Concomitant]
     Indication: PROPHYLAXIS
     Route: 048
     Dates: start: 20090608
  4. ANAFRANIL [Concomitant]
     Indication: DEPRESSION
     Dosage: 75 MG, DAILY (1/D)
     Route: 048
  5. CRESTOR [Concomitant]
     Indication: DYSLIPIDAEMIA
     Dosage: 10 MG, DAILY (1/D)
     Route: 048
  6. INNOHEP [Concomitant]
     Dosage: 1 D/F, DAILY (1/D)
     Route: 058
     Dates: end: 20090619
  7. MOTILIUM [Concomitant]
     Indication: PROPHYLAXIS
     Dosage: 3 D/F, DAILY (1/D)
     Route: 048
     Dates: start: 20090608
  8. PRIMPERAN                               /SCH/ [Concomitant]
     Indication: PROPHYLAXIS
     Dosage: 3 D/F, DAILY (1/D)
     Route: 048
     Dates: start: 20090608
  9. ZOPHREN [Concomitant]
     Indication: PROPHYLAXIS
     Dosage: 8 MG, 2/D
     Route: 048
     Dates: start: 20090608
  10. NAVELBINE [Concomitant]
     Indication: LUNG ADENOCARCINOMA
     Dosage: UNK, UNKNOWN
     Route: 042
     Dates: start: 20090628
  11. SOLU-MEDROL [Concomitant]
     Indication: PROPHYLAXIS
     Dosage: 1 D/F, DAILY (1/D)
     Route: 048
     Dates: start: 20090608
  12. NEXIUM [Concomitant]
     Dosage: 20 MG, DAILY (1/D)
     Route: 048
     Dates: start: 20090608

REACTIONS (2)
  - ARTERIAL THROMBOSIS [None]
  - PERIPHERAL ISCHAEMIA [None]
